FAERS Safety Report 4287987-5 (Version None)
Quarter: 2004Q1

REPORT INFORMATION
  Report Type: 
  Country: None (occurrence: None)
  Receive Date: 20040202
  Receipt Date: 20030715
  Transmission Date: 20041129
  Serious: Yes (Hospitalization)
  Sender: FDA-Public Use
  Company Number: 137173USA

PATIENT
  Age: 67 Year
  Sex: Female

DRUGS (13)
  1. COPAXONE [Suspect]
     Indication: MULTIPLE SCLEROSIS
     Dates: start: 20030401, end: 20030401
  2. BETASERON [Suspect]
     Indication: MULTIPLE SCLEROSIS
     Dosage: 8 ML QOD
     Dates: start: 20000101, end: 20030301
  3. TIZANIDINE HYDROCHLORIDE [Concomitant]
  4. SERTRALINE HCL [Concomitant]
  5. FELODIPINE [Concomitant]
  6. LOSARTAN POTASSIUM [Concomitant]
  7. RABEPRAZOLE SODIUM [Concomitant]
  8. FUROSEMIDE [Concomitant]
  9. CONJUGATED ESTROGENS [Concomitant]
  10. BACLOFEN [Concomitant]
  11. ATORVASTATIN CALCIUM [Concomitant]
  12. ASPIRIN [Concomitant]
  13. ATENOLOL [Concomitant]

REACTIONS (2)
  - CHEST PAIN [None]
  - MULTIPLE SCLEROSIS RELAPSE [None]
